FAERS Safety Report 19216010 (Version 1)
Quarter: 2021Q2

REPORT INFORMATION
  Report Type: Spontaneous
  Country: US (occurrence: US)
  Receive Date: 20210504
  Receipt Date: 20210504
  Transmission Date: 20210717
  Serious: No
  Sender: FDA-Public Use
  Company Number: None

PATIENT
  Age: 57 Year
  Sex: Male

DRUGS (1)
  1. BAMLANIVIMAB/ETESEVIMAB [Suspect]
     Active Substance: BAMLANIVIMAB\ETESEVIMAB
     Dates: start: 20210503, end: 20210503

REACTIONS (5)
  - Dyspnoea [None]
  - Muscle spasms [None]
  - Pain [None]
  - Blood pressure systolic increased [None]
  - Pain in extremity [None]

NARRATIVE: CASE EVENT DATE: 20210503
